FAERS Safety Report 8902631 (Version 1)
Quarter: 2012Q4

REPORT INFORMATION
  Report Type: 
  Country: DE (occurrence: DE)
  Receive Date: 20121112
  Receipt Date: 20121112
  Transmission Date: 20130627
  Serious: Yes (Death)
  Sender: FDA-Public Use
  Company Number: GXKR2012DE003456

PATIENT
  Age: 65 Year
  Sex: Female
  Weight: 53 kg

DRUGS (1)
  1. THIAMAZOLE [Suspect]
     Indication: HYPERTHYROIDISM
     Dates: start: 2012

REACTIONS (8)
  - Agranulocytosis [Fatal]
  - Pyrexia [Fatal]
  - Chills [Fatal]
  - Throat irritation [Fatal]
  - Multi-organ failure [Fatal]
  - Septic shock [Fatal]
  - Malaise [Fatal]
  - Herpes virus infection [Fatal]
